FAERS Safety Report 6766663-0 (Version None)
Quarter: 2010Q2

REPORT INFORMATION
  Report Type: 
  Country: None (occurrence: None)
  Receive Date: 20100611
  Receipt Date: 20100525
  Transmission Date: 20101027
  Serious: Yes (Other)
  Sender: FDA-Public Use
  Company Number: PHEH2008US03194

PATIENT
  Sex: Female
  Weight: 73.469 kg

DRUGS (17)
  1. AREDIA [Suspect]
     Dosage: UNK
  2. ZOMETA [Suspect]
     Dosage: UNK
  3. TAMOXIFEN [Concomitant]
  4. DURAGESIC-100 [Concomitant]
  5. ATIVAN [Concomitant]
  6. LOTREL [Concomitant]
  7. PERCOCET [Concomitant]
     Dosage: 325 MG, QID
  8. LORTAB [Concomitant]
     Dosage: 10/500, Q 4 HOURS PRN
  9. FEMARA [Concomitant]
     Dosage: 2.5 MG, QD
  10. AUGMENTIN '125' [Concomitant]
  11. FENTANYL [Concomitant]
  12. LOVASTATIN [Concomitant]
  13. BENAZEPRIL HYDROCHLORIDE [Concomitant]
  14. ISOSORBIDE [Concomitant]
  15. MOBIC [Concomitant]
  16. AMBIEN [Concomitant]
  17. NEXIUM [Concomitant]

REACTIONS (35)
  - ANGINA PECTORIS [None]
  - ANXIETY [None]
  - BACK PAIN [None]
  - BONE DEBRIDEMENT [None]
  - BONE DISORDER [None]
  - CORONARY ARTERY DISEASE [None]
  - DUODENITIS [None]
  - EMOTIONAL DISTRESS [None]
  - ESCHERICHIA INFECTION [None]
  - GASTRITIS [None]
  - GASTROOESOPHAGEAL REFLUX DISEASE [None]
  - HYDRONEPHROSIS [None]
  - INFECTION [None]
  - INJURY [None]
  - LESION EXCISION [None]
  - LYMPHADENOPATHY [None]
  - MELAENA [None]
  - METASTASES TO BONE [None]
  - OESOPHAGITIS [None]
  - ORAL MUCOSAL ERYTHEMA [None]
  - OSTEOMYELITIS [None]
  - OSTEONECROSIS OF JAW [None]
  - OSTEOPOROSIS [None]
  - OSTEOSCLEROSIS [None]
  - PAIN [None]
  - PAIN IN JAW [None]
  - PHYSICAL DISABILITY [None]
  - PURULENCE [None]
  - SCAR [None]
  - SPINAL OSTEOARTHRITIS [None]
  - SWELLING [None]
  - TOOTH DISORDER [None]
  - URETHRAL STENT INSERTION [None]
  - URINARY TRACT INFECTION [None]
  - WEIGHT DECREASED [None]
